FAERS Safety Report 5972299-1 (Version None)
Quarter: 2008Q4

REPORT INFORMATION
  Report Type: 
  Country: None (occurrence: None)
  Receive Date: 20081201
  Receipt Date: 20080715
  Transmission Date: 20090506
  Serious: No
  Sender: FDA-Public Use
  Company Number: US-TEVA-174710USA

PATIENT
  Sex: Female
  Weight: 90.8 kg

DRUGS (1)
  1. SALBUTAMOL SULFATE INHALATION, 0.09 MG [Suspect]
     Indication: ASTHMA
     Dosage: 2 INHALATIONS AS NEEDED
     Route: 055
     Dates: start: 20070111, end: 20080523

REACTIONS (3)
  - DRUG INEFFECTIVE [None]
  - INSOMNIA [None]
  - TINNITUS [None]
